FAERS Safety Report 19064696 (Version 2)
Quarter: 2021Q2

REPORT INFORMATION
  Report Type: Report from Study
  Country: US (occurrence: US)
  Receive Date: 20210326
  Receipt Date: 20210602
  Transmission Date: 20210717
  Serious: Yes (Disabling, Other)
  Sender: FDA-Public Use
  Company Number: US-REGENERON PHARMACEUTICALS, INC.-2021-14766

PATIENT

DRUGS (1)
  1. EYLEA [Suspect]
     Active Substance: AFLIBERCEPT
     Indication: RETINAL VEIN OCCLUSION
     Dosage: 2.0 MG/0.0.5 ML Q6?10 WEEKS
     Route: 031
     Dates: start: 20200409, end: 20201116

REACTIONS (3)
  - Open angle glaucoma [Unknown]
  - Cataract [Unknown]
  - Blindness unilateral [Unknown]
